FAERS Safety Report 4893448-2 (Version None)
Quarter: 2006Q1

REPORT INFORMATION
  Report Type: 
  Country: None (occurrence: None)
  Receive Date: 20060127
  Receipt Date: 20060113
  Transmission Date: 20060701
  Serious: Yes (Life-Threatening, Hospitalization)
  Sender: FDA-Public Use
  Company Number: PHNU2006DE00536

PATIENT
  Age: 23 Year
  Sex: Male
  Weight: 65 kg

DRUGS (5)
  1. SANDIMMUNE [Concomitant]
     Indication: RENAL TRANSPLANT
     Dosage: 75/0/100MG/DAY
     Dates: start: 20020101, end: 20050101
  2. NORVASC [Concomitant]
     Indication: RENAL HYPERTENSION
     Dosage: 1 DF, QD
     Route: 048
     Dates: start: 20020101, end: 20050101
  3. VOTUM [Concomitant]
     Indication: RENAL HYPERTENSION
     Dosage: 1 DF, QD
     Route: 048
     Dates: start: 20030101, end: 20050101
  4. MYFORTIC [Suspect]
     Indication: RENAL TRANSPLANT
     Dosage: 2 DF, BID
     Route: 048
     Dates: start: 20040101, end: 20050101
  5. CELLCEPT [Concomitant]
     Dates: start: 20020101, end: 20030101

REACTIONS (8)
  - AGRANULOCYTOSIS [None]
  - ANAEMIA [None]
  - DIARRHOEA [None]
  - GASTROENTERITIS [None]
  - GRANULOCYTE COUNT DECREASED [None]
  - PYREXIA [None]
  - VIRAL INFECTION [None]
  - WHITE BLOOD CELL COUNT DECREASED [None]
